FAERS Safety Report 6985892-4 (Version None)
Quarter: 2010Q3

REPORT INFORMATION
  Report Type: 
  Country: None (occurrence: None)
  Receive Date: 20100915
  Receipt Date: 20100903
  Transmission Date: 20110219
  Serious: Yes (Other)
  Sender: FDA-Public Use
  Company Number: PHEH2006US08863

PATIENT
  Sex: Female

DRUGS (11)
  1. AREDIA [Suspect]
     Indication: METASTASES TO BONE
     Dosage: UNK
     Dates: start: 20000307
  2. ZOMETA [Suspect]
     Dosage: UNK
     Route: 042
  3. LISINOPRIL [Concomitant]
  4. VERAPAMIL [Concomitant]
  5. CARVEDILOL [Concomitant]
  6. FLAGYL [Concomitant]
  7. PENICILLIN [Concomitant]
  8. NOTUSS [Concomitant]
  9. HYDROCODONE [Concomitant]
  10. NEURONTIN [Concomitant]
  11. AROMASIN [Concomitant]
     Dosage: UNK
     Dates: start: 20000822

REACTIONS (17)
  - ALVEOLAR OSTEITIS [None]
  - ANXIETY [None]
  - ARTHRALGIA [None]
  - BONE DISORDER [None]
  - CARDIAC FLUTTER [None]
  - DECREASED INTEREST [None]
  - DIABETES MELLITUS [None]
  - DRY MOUTH [None]
  - GENERAL PHYSICAL HEALTH DETERIORATION [None]
  - METASTASES TO BONE [None]
  - OSTEONECROSIS OF JAW [None]
  - PAIN [None]
  - PAIN IN JAW [None]
  - PALPITATIONS [None]
  - SCIATICA [None]
  - TOOTH EXTRACTION [None]
  - TRIGEMINAL NEURALGIA [None]
